FAERS Safety Report 12524373 (Version 1)
Quarter: 2016Q3

REPORT INFORMATION
  Report Type: Report from Study
  Country: CA (occurrence: CA)
  Receive Date: 20160704
  Receipt Date: 20160704
  Transmission Date: 20161109
  Serious: Yes (Other)
  Sender: FDA-Public Use
  Company Number: PHHY2014CA107264

PATIENT
  Age: 66 Year
  Sex: Female

DRUGS (3)
  1. SUTENT [Suspect]
     Active Substance: SUNITINIB MALATE
     Indication: PRODUCT USED FOR UNKNOWN INDICATION
     Dosage: UNK
     Route: 048
  2. SANDOSTATIN LAR DEPOT [Suspect]
     Active Substance: OCTREOTIDE ACETATE
     Indication: PANCREATIC NEUROENDOCRINE TUMOUR
     Dosage: 30 MG, EVERY 4 WEEKS
     Route: 030
     Dates: start: 20140722, end: 20160504
  3. AFINITOR [Suspect]
     Active Substance: EVEROLIMUS
     Indication: PANCREATIC NEUROENDOCRINE TUMOUR
     Dosage: 10 MG, QD
     Route: 048
     Dates: start: 20150305, end: 2016

REACTIONS (23)
  - Malaise [Unknown]
  - Musculoskeletal pain [Recovered/Resolved]
  - Gait disturbance [Unknown]
  - Ligament sprain [Unknown]
  - Weight decreased [Unknown]
  - Feeling abnormal [Unknown]
  - Abdominal pain upper [Unknown]
  - Blood glucose increased [Unknown]
  - H1N1 influenza [Unknown]
  - Tumour pain [Unknown]
  - Pain [Recovered/Resolved]
  - Arthralgia [Unknown]
  - Feeding disorder [Unknown]
  - Hepatic pain [Unknown]
  - Weight increased [Unknown]
  - Hepatic neoplasm [Unknown]
  - Pertussis [Unknown]
  - Stomatitis [Unknown]
  - Injection site swelling [Unknown]
  - Blood pressure systolic increased [Unknown]
  - Headache [Recovered/Resolved]
  - Blood magnesium decreased [Unknown]
  - Injection site pain [Unknown]

NARRATIVE: CASE EVENT DATE: 20140821
